FAERS Safety Report 18683771 (Version 4)
Quarter: 2021Q4

REPORT INFORMATION
  Report Type: Spontaneous
  Country: US (occurrence: US)
  Receive Date: 20201230
  Receipt Date: 20211008
  Transmission Date: 20220303
  Serious: Yes (Other)
  Sender: FDA-Public Use
  Company Number: US-PFIZER INC-2020516046

PATIENT
  Age: 64 Year
  Sex: Female
  Weight: 86.17 kg

DRUGS (3)
  1. PREMARIN [Suspect]
     Active Substance: ESTROGENS, CONJUGATED
     Indication: Menopausal symptoms
     Dosage: 1 UNK
     Dates: start: 2018
  2. PREMARIN [Suspect]
     Active Substance: ESTROGENS, CONJUGATED
     Indication: Vaginal disorder
     Dosage: 0.5 UNK
     Dates: start: 202104
  3. DILTIAZEM [Concomitant]
     Active Substance: DILTIAZEM
     Indication: Hypertension
     Dosage: 30 MG, 2X/DAY
     Dates: start: 2019

REACTIONS (5)
  - Deafness [Unknown]
  - Eczema [Unknown]
  - Weight increased [Unknown]
  - Intentional product misuse [Recovering/Resolving]
  - Therapeutic response unexpected [Unknown]

NARRATIVE: CASE EVENT DATE: 20210401
